FAERS Safety Report 15982236 (Version 3)
Quarter: 2019Q1

REPORT INFORMATION
  Report Type: Spontaneous
  Country: BR (occurrence: BR)
  Receive Date: 20190219
  Receipt Date: 20190327
  Transmission Date: 20190418
  Serious: Yes (Hospitalization, Other)
  Sender: FDA-Public Use
  Company Number: BR-PFIZER INC-2019068543

PATIENT
  Age: 71 Year
  Sex: Female

DRUGS (2)
  1. MINIPRESS [Suspect]
     Active Substance: PRAZOSIN HYDROCHLORIDE
     Dosage: 3 TABLETS OF 1 MG PER DAY
  2. MINIPRESS [Suspect]
     Active Substance: PRAZOSIN HYDROCHLORIDE
     Dosage: HALD A TABLET OF 1MG, 0.5 MG, DAILY

REACTIONS (5)
  - Memory impairment [Unknown]
  - Feeling abnormal [Unknown]
  - Intentional product use issue [Unknown]
  - Hypertension [Unknown]
  - Syncope [Unknown]
